FAERS Safety Report 9133773 (Version 3)
Quarter: 2013Q4

REPORT INFORMATION
  Report Type: Report from Study
  Country: US (occurrence: US)
  Receive Date: 20130302
  Receipt Date: 20131016
  Transmission Date: 20140711
  Serious: Yes (Hospitalization)
  Sender: FDA-Public Use
  Company Number: US-US-EMD SERONO, INC.-7196021

PATIENT
  Age: 68 Year
  Sex: Female

DRUGS (6)
  1. REBIF [Suspect]
     Indication: MULTIPLE SCLEROSIS
     Route: 058
     Dates: start: 201206, end: 201212
  2. REBIF [Suspect]
     Route: 058
     Dates: start: 201307
  3. NEURONTIN [Concomitant]
     Indication: PRODUCT USED FOR UNKNOWN INDICATION
  4. PLAVIX                             /01220701/ [Concomitant]
     Indication: PRODUCT USED FOR UNKNOWN INDICATION
  5. COZAAR [Concomitant]
     Indication: PRODUCT USED FOR UNKNOWN INDICATION
  6. PRAVASTATIN [Concomitant]
     Indication: PRODUCT USED FOR UNKNOWN INDICATION

REACTIONS (2)
  - Bronchitis [Unknown]
  - Injection site haemorrhage [Unknown]
